FAERS Safety Report 13888841 (Version 2)
Quarter: 2017Q3

REPORT INFORMATION
  Report Type: Spontaneous
  Country: NL (occurrence: NL)
  Receive Date: 20170821
  Receipt Date: 20170823
  Transmission Date: 20171127
  Serious: Yes (Disabling, Other)
  Sender: FDA-Public Use
  Company Number: NL-ALLERGAN-1735523US

PATIENT
  Age: 78 Year
  Sex: Female

DRUGS (10)
  1. LEVOTHYROXINE. [Concomitant]
     Active Substance: LEVOTHYROXINE
     Dosage: 12.5 ?G, UNK
  2. ATORVASTATIN [Concomitant]
     Active Substance: ATORVASTATIN
     Dosage: 40 MG, QD
  3. PREDNISOLONE. [Concomitant]
     Active Substance: PREDNISOLONE
     Dosage: 10 MG, QD
  4. CALCIUM +VIT D [Concomitant]
     Active Substance: CALCIUM\VITAMIN D
     Dosage: 1 DF, QD
  5. PRED FORTE [Suspect]
     Active Substance: PREDNISOLONE ACETATE
     Indication: HERPES OPHTHALMIC
     Dosage: 1 GTT, BID
     Route: 047
     Dates: start: 201603, end: 201703
  6. COSOPT [Concomitant]
     Active Substance: DORZOLAMIDE HYDROCHLORIDE\TIMOLOL MALEATE
     Dosage: 2 GTT, BID
  7. LATANOPROST. [Concomitant]
     Active Substance: LATANOPROST
     Dosage: 2 GTT, BID
  8. LANOXIN [Concomitant]
     Active Substance: DIGOXIN
     Dosage: 1 DF, UNK
  9. METFORMINE [Concomitant]
     Active Substance: METFORMIN HYDROCHLORIDE
     Dosage: 500 MG, UNK
  10. PANTOPRAZOL [Concomitant]
     Active Substance: PANTOPRAZOLE SODIUM
     Dosage: 1 DF, QD

REACTIONS (3)
  - Blindness [Unknown]
  - Cerebral haemorrhage [Unknown]
  - Off label use [Unknown]
